FAERS Safety Report 12700581 (Version 1)
Quarter: 2016Q3

REPORT INFORMATION
  Report Type: Spontaneous
  Country: US (occurrence: US)
  Receive Date: 20160830
  Receipt Date: 20160830
  Transmission Date: 20161109
  Serious: Yes (Other)
  Sender: FDA-Public Use
  Company Number: US-RARE DISEASE THERAPEUTICS, INC.-1056894

PATIENT
  Age: 35 Year
  Sex: Female
  Weight: 84.82 kg

DRUGS (10)
  1. CITRACAL + D [Concomitant]
     Active Substance: CALCIUM CITRATE\VITAMIN D
  2. PREDNISONE. [Concomitant]
     Active Substance: PREDNISONE
  3. AZITHROMYCIN ANHYDROUS. [Concomitant]
     Active Substance: AZITHROMYCIN ANHYDROUS
  4. VITAMIN B6 [Concomitant]
     Active Substance: PYRIDOXINE HYDROCHLORIDE
  5. CYSTADANE [Suspect]
     Active Substance: BETAINE
     Indication: HOMOCYSTINURIA
     Dates: start: 20140711
  6. NORCO [Concomitant]
     Active Substance: ACETAMINOPHEN\HYDROCODONE BITARTRATE
  7. CYCLOBENZAPRINE [Concomitant]
     Active Substance: CYCLOBENZAPRINE
  8. PROVENTIL [Concomitant]
     Active Substance: ALBUTEROL
  9. FOLIC ACID. [Concomitant]
     Active Substance: FOLIC ACID
  10. BENZONATATE. [Concomitant]
     Active Substance: BENZONATATE

REACTIONS (5)
  - Herpes zoster [Not Recovered/Not Resolved]
  - Pharyngitis streptococcal [Not Recovered/Not Resolved]
  - Overdose [None]
  - Sinusitis [Not Recovered/Not Resolved]
  - Lung infection [Not Recovered/Not Resolved]

NARRATIVE: CASE EVENT DATE: 20160803
